FAERS Safety Report 6881769-3 (Version None)
Quarter: 2010Q3

REPORT INFORMATION
  Report Type: 
  Country: None (occurrence: None)
  Receive Date: 20100728
  Receipt Date: 20100728
  Transmission Date: 20110219
  Serious: Yes (Other)
  Sender: FDA-Public Use
  Company Number: None

PATIENT
  Sex: Female
  Weight: 74.8435 kg

DRUGS (1)
  1. EUFLEXXA INJECTION [Suspect]
     Indication: ARTHRALGIA
     Dates: start: 20100618

REACTIONS (7)
  - ABDOMINAL DISCOMFORT [None]
  - ARTHRALGIA [None]
  - BLOOD GLUCOSE INCREASED [None]
  - DIZZINESS [None]
  - ECCHYMOSIS [None]
  - NAUSEA [None]
  - NIGHTMARE [None]
